FAERS Safety Report 5314818-4 (Version None)
Quarter: 2007Q2

REPORT INFORMATION
  Report Type: 
  Country: None (occurrence: None)
  Receive Date: 20070502
  Receipt Date: 20070423
  Transmission Date: 20071010
  Serious: Yes (Other)
  Sender: FDA-Public Use
  Company Number: GR-JNJFOC-20070404895

PATIENT
  Age: 72 Year
  Sex: Male

DRUGS (5)
  1. REMICADE [Suspect]
  2. REMICADE [Suspect]
  3. REMICADE [Suspect]
     Indication: PSORIASIS
  4. RIFINAH [Concomitant]
     Indication: PROPHYLACTIC CHEMOTHERAPY
     Route: 048
  5. ISONIAZID [Concomitant]
     Indication: PROPHYLACTIC CHEMOTHERAPY
     Route: 048

REACTIONS (3)
  - DIARRHOEA [None]
  - PYREXIA [None]
  - RASH [None]
